FAERS Safety Report 5799908-4 (Version None)
Quarter: 2008Q2

REPORT INFORMATION
  Report Type: 
  Country: None (occurrence: None)
  Receive Date: 20080626
  Receipt Date: 20070522
  Transmission Date: 20081010
  Serious: No
  Sender: FDA-Public Use
  Company Number: 499210

PATIENT
  Age: 63 Year
  Sex: Female
  Weight: 77.3 kg

DRUGS (2)
  1. XELODA [Suspect]
     Indication: DRUG USE FOR UNKNOWN INDICATION
     Dosage: 3150 MG DAILY ORAL
     Route: 048
     Dates: start: 20070401
  2. LAPATINIB (LAPATINIB) [Suspect]
     Indication: DRUG USE FOR UNKNOWN INDICATION
     Dosage: 5 DOSE FORM DAILY ORAL
     Route: 048
     Dates: start: 20070401

REACTIONS (5)
  - ANOREXIA [None]
  - DIARRHOEA [None]
  - DRUG ADMINISTRATION ERROR [None]
  - NAUSEA [None]
  - VOMITING [None]
